FAERS Safety Report 9125024 (Version 1)
Quarter: 2013Q1

REPORT INFORMATION
  Report Type: Spontaneous
  Country: US (occurrence: US)
  Receive Date: 20130121
  Receipt Date: 20130121
  Transmission Date: 20140127
  Serious: Yes (Death, Other)
  Sender: FDA-Public Use
  Company Number: US-UCBSA-075041

PATIENT
  Age: 39 Year
  Sex: Female

DRUGS (3)
  1. HYDROCODONE /ACETAMINOPHEN [Suspect]
     Dosage: ROUTE: PARENTARAL
  2. FENTANYL [Suspect]
     Dosage: ROUTE: PARENTARAL
  3. OXYCODONE [Suspect]
     Dosage: ROUTE: PARENTARAL

REACTIONS (2)
  - Drug abuse [Fatal]
  - Incorrect route of drug administration [Unknown]
